FAERS Safety Report 8996053 (Version 1)
Quarter: 2013Q1

REPORT INFORMATION
  Report Type: Spontaneous
  Country: US (occurrence: US)
  Receive Date: 20130103
  Receipt Date: 20130103
  Transmission Date: 20140127
  Serious: No
  Sender: FDA-Public Use
  Company Number: US-ABBOTT-12P-163-1006366-00

PATIENT
  Age: 57 None
  Sex: Female
  Weight: 81.72 kg

DRUGS (2)
  1. SYNTHROID [Suspect]
     Indication: HYPOTHYROIDISM
     Dates: start: 2002, end: 20121031
  2. CYTOMEL [Concomitant]
     Indication: HYPOTHYROIDISM
     Dates: start: 2012, end: 20121031

REACTIONS (8)
  - Weight increased [Not Recovered/Not Resolved]
  - Chest pain [Recovering/Resolving]
  - Feeling abnormal [Recovering/Resolving]
  - Fatigue [Recovering/Resolving]
  - Thyroxine decreased [Unknown]
  - Tri-iodothyronine decreased [Unknown]
  - Product quality issue [Unknown]
  - Drug ineffective [Unknown]
